FAERS Safety Report 10336387 (Version 2)
Quarter: 2014Q3

REPORT INFORMATION
  Report Type: Report from Study
  Country: DE (occurrence: DE)
  Receive Date: 20140723
  Receipt Date: 20140723
  Transmission Date: 20150326
  Serious: Yes (Hospitalization)
  Sender: FDA-Public Use
  Company Number: DE-BAYER-2014-106016

PATIENT
  Age: 58 Year
  Sex: Male

DRUGS (1)
  1. BETAFERON [Suspect]
     Active Substance: INTERFERON BETA-1B
     Indication: MULTIPLE SCLEROSIS
     Dosage: 62.5 ?G, QOD
     Route: 058
     Dates: start: 20140708, end: 20140714

REACTIONS (2)
  - Rash generalised [Not Recovered/Not Resolved]
  - Respiratory disorder [None]

NARRATIVE: CASE EVENT DATE: 20140710
